FAERS Safety Report 9210988 (Version 1)
Quarter: 2013Q2

REPORT INFORMATION
  Report Type: Spontaneous
  Country: FR (occurrence: FR)
  Receive Date: 20130404
  Receipt Date: 20130404
  Transmission Date: 20140414
  Serious: Yes (Hospitalization)
  Sender: FDA-Public Use
  Company Number: FR-BRISTOL-MYERS SQUIBB COMPANY-18723213

PATIENT
  Age: 84 Year
  Sex: Female

DRUGS (7)
  1. COUMADIN TABS 2 MG [Suspect]
     Indication: HEART VALVE OPERATION
     Route: 048
     Dates: end: 20130222
  2. COVERSYL [Concomitant]
  3. LASILIX FAIBLE [Concomitant]
  4. SEROPLEX [Concomitant]
  5. ZOLPIDEM [Concomitant]
  6. CERIS [Concomitant]
  7. ESTRIOL [Concomitant]

REACTIONS (3)
  - Haemorrhagic stroke [Recovering/Resolving]
  - Fall [Unknown]
  - Skull fracture [Unknown]
